FAERS Safety Report 6905240-5 (Version None)
Quarter: 2010Q3

REPORT INFORMATION
  Report Type: 
  Country: None (occurrence: None)
  Receive Date: 20100802
  Receipt Date: 20100719
  Transmission Date: 20110219
  Serious: Yes (Hospitalization)
  Sender: FDA-Public Use
  Company Number: 015691

PATIENT
  Sex: Female

DRUGS (1)
  1. CIMZIA [Suspect]
     Indication: CROHN'S DISEASE
     Dosage: (400 MG 1X/2 MONTHS SUBCUTANEOUS)
     Route: 058
     Dates: start: 20091224

REACTIONS (4)
  - ABDOMINAL PAIN UPPER [None]
  - ASTHMA [None]
  - DIARRHOEA [None]
  - DRUG INEFFECTIVE [None]
